FAERS Safety Report 9162334 (Version 1)
Quarter: 2013Q1

REPORT INFORMATION
  Report Type: Spontaneous
  Country: US (occurrence: None)
  Receive Date: 20130225
  Receipt Date: 20130225
  Transmission Date: 20140127
  Serious: Yes (Other)
  Sender: FDA-Public Use
  Company Number: 2013-02978

PATIENT
  Age: 39 Year
  Sex: Female

DRUGS (1)
  1. PHENYTOIN [Suspect]
     Indication: PARTIAL SEIZURES
     Route: 042

REACTIONS (5)
  - Altered state of consciousness [None]
  - Dyspnoea [None]
  - Acute vestibular syndrome [None]
  - Nystagmus [None]
  - Accidental overdose [None]
